FAERS Safety Report 18098000 (Version 4)
Quarter: 2021Q1

REPORT INFORMATION
  Report Type: Report from Study
  Country: US (occurrence: US)
  Receive Date: 20200731
  Receipt Date: 20210219
  Transmission Date: 20210419
  Serious: No
  Sender: FDA-Public Use
  Company Number: US-BIOVITRUM-2020US4019

PATIENT
  Age: 56 Year
  Sex: Female

DRUGS (3)
  1. KINERET [Suspect]
     Active Substance: ANAKINRA
     Indication: IMMUNE SYSTEM DISORDER
  2. KINERET [Suspect]
     Active Substance: ANAKINRA
     Indication: COLD URTICARIA
     Route: 058
     Dates: start: 20190504
  3. KINERET [Suspect]
     Active Substance: ANAKINRA
     Indication: URTICARIA THERMAL

REACTIONS (6)
  - Infection [Unknown]
  - Illness [Unknown]
  - Cartilage injury [Unknown]
  - Musculoskeletal discomfort [Unknown]
  - Off label use [Unknown]
  - Back disorder [Unknown]

NARRATIVE: CASE EVENT DATE: 20190504
